FAERS Safety Report 16036679 (Version 1)
Quarter: 2019Q1

REPORT INFORMATION
  Report Type: Spontaneous
  Country: US (occurrence: US)
  Receive Date: 20190305
  Receipt Date: 20190305
  Transmission Date: 20190418
  Serious: No
  Sender: FDA-Public Use
  Company Number: US-IMPAX LABORATORIES, LLC-2018-IPXL-03047

PATIENT
  Sex: Male
  Weight: 100 kg

DRUGS (4)
  1. RYTARY [Suspect]
     Active Substance: CARBIDOPA\LEVODOPA
     Dosage: 23.75/95MG, FOUR CAPSULES, FOUR TIMES A DAY(8AM, 12PM, 4PM, 8PM)
     Route: 048
     Dates: start: 201809
  2. RYTARY [Suspect]
     Active Substance: CARBIDOPA\LEVODOPA
     Indication: PARKINSON^S DISEASE
     Dosage: 23.75/95MG, THREE CAPSULES, FOUR TIMES DAILY
     Route: 048
     Dates: start: 20180911, end: 201809
  3. CARBIDOPA-LEVODOPA ER [Suspect]
     Active Substance: CARBIDOPA\LEVODOPA
     Indication: PARKINSON^S DISEASE
     Dosage: UNK
     Route: 048
  4. MIRAPEX [Concomitant]
     Active Substance: PRAMIPEXOLE DIHYDROCHLORIDE
     Indication: PARKINSON^S DISEASE
     Dosage: 1 MG, QID
     Route: 048

REACTIONS (3)
  - Product dose omission [Unknown]
  - Gait disturbance [Recovering/Resolving]
  - Therapeutic response shortened [Not Recovered/Not Resolved]
